FAERS Safety Report 10960698 (Version 2)
Quarter: 2015Q2

REPORT INFORMATION
  Report Type: Spontaneous
  Country: JP (occurrence: JP)
  Receive Date: 20150327
  Receipt Date: 20150409
  Transmission Date: 20150821
  Serious: Yes (Other)
  Sender: FDA-Public Use
  Company Number: JP-PFIZER INC-2015107206

PATIENT
  Age: 34 Year
  Sex: Female

DRUGS (2)
  1. CRAVIT [Suspect]
     Active Substance: LEVOFLOXACIN
     Dosage: 500 MG, 1X/DAY
     Route: 048
     Dates: start: 20150315, end: 20150316
  2. CELECOX [Suspect]
     Active Substance: CELECOXIB
     Indication: CANCER PAIN
     Dosage: 400 MG, 1X/DAY
     Route: 048
     Dates: start: 20150310, end: 20150316

REACTIONS (2)
  - Off label use [Unknown]
  - Seizure [Recovered/Resolved]

NARRATIVE: CASE EVENT DATE: 20150310
